FAERS Safety Report 9084634 (Version 1)
Quarter: 2013Q1

REPORT INFORMATION
  Report Type: Report from Study
  Country: NL (occurrence: NL)
  Receive Date: 20130131
  Receipt Date: 20130131
  Transmission Date: 20140127
  Serious: Yes (Hospitalization)
  Sender: FDA-Public Use
  Company Number: NL-ROCHE-1183508

PATIENT
  Age: 63 None
  Sex: Female

DRUGS (2)
  1. BEVACIZUMAB [Suspect]
     Indication: BREAST CANCER RECURRENT
     Dosage: LAST DOSE PRIOR TO SAE : 27/DEC/2012
     Route: 042
     Dates: start: 20120920
  2. PACLITAXEL [Suspect]
     Indication: BREAST CANCER RECURRENT
     Dosage: LAST DOSE PRIOR TO SAE : 03/JAN/2013
     Route: 042
     Dates: start: 20120920

REACTIONS (2)
  - Paresis [Recovered/Resolved]
  - Influenza like illness [Recovered/Resolved]
